FAERS Safety Report 25199599 (Version 1)
Quarter: 2025Q2

REPORT INFORMATION
  Report Type: Spontaneous
  Country: US (occurrence: None)
  Receive Date: 20250415
  Receipt Date: 20250415
  Transmission Date: 20250717
  Serious: Yes (Disabling)
  Sender: FDA-CTU
  Company Number: None

PATIENT
  Age: 73 Year
  Sex: Female
  Weight: 39.15 kg

DRUGS (7)
  1. REXULTI [Suspect]
     Active Substance: BREXPIPRAZOLE
     Indication: Dementia Alzheimer^s type
     Dosage: OTHER QUANTITY : 1 TABLET(S);?FREQUENCY : DAILY;?
     Route: 048
     Dates: start: 20250123, end: 20250323
  2. TRAODONE [Concomitant]
  3. QUETIAPINE [Concomitant]
     Active Substance: QUETIAPINE
  4. ALPRAZOLAM [Concomitant]
     Active Substance: ALPRAZOLAM
  5. ESCITALOPRAM [Concomitant]
     Active Substance: ESCITALOPRAM OXALATE
  6. NAC [Concomitant]
  7. CAYENNE PEPPER [Concomitant]
     Active Substance: CAPSICUM

REACTIONS (2)
  - Tardive dyskinesia [None]
  - Cerebrovascular accident [None]

NARRATIVE: CASE EVENT DATE: 20250321
